FAERS Safety Report 25423650 (Version 2)
Quarter: 2025Q3

REPORT INFORMATION
  Report Type: Report from Study
  Country: CA (occurrence: CA)
  Receive Date: 20250611
  Receipt Date: 20250731
  Transmission Date: 20251021
  Serious: Yes (Hospitalization)
  Sender: OTSUKA
  Company Number: CA-MMM-Otsuka-AZFMV9JR

PATIENT
  Sex: Female

DRUGS (2)
  1. ARIPIPRAZOLE [Suspect]
     Active Substance: ARIPIPRAZOLE
     Indication: Bipolar disorder
     Route: 030
  2. ARIPIPRAZOLE [Suspect]
     Active Substance: ARIPIPRAZOLE
     Route: 030
     Dates: start: 202504

REACTIONS (4)
  - Mania [Unknown]
  - Brain fog [Recovering/Resolving]
  - Fatigue [Recovering/Resolving]
  - Restlessness [Recovering/Resolving]
